FAERS Safety Report 11078616 (Version 5)
Quarter: 2016Q2

REPORT INFORMATION
  Report Type: Report from Study
  Country: US (occurrence: US)
  Receive Date: 20150430
  Receipt Date: 20160408
  Transmission Date: 20160815
  Serious: Yes (Disabling, Other)
  Sender: FDA-Public Use
  Company Number: US-SA-2015SA030220

PATIENT
  Age: 62 Year
  Sex: Female

DRUGS (4)
  1. LEMTRADA [Suspect]
     Active Substance: ALEMTUZUMAB
     Indication: MULTIPLE SCLEROSIS
     Route: 041
     Dates: start: 20150302, end: 20150304
  2. LEMTRADA [Suspect]
     Active Substance: ALEMTUZUMAB
     Indication: MULTIPLE SCLEROSIS
     Route: 041
     Dates: start: 20150306, end: 20150306
  3. LEMTRADA [Suspect]
     Active Substance: ALEMTUZUMAB
     Indication: MULTIPLE SCLEROSIS
     Route: 041
     Dates: start: 20160307, end: 20160309
  4. LEMTRADA [Suspect]
     Active Substance: ALEMTUZUMAB
     Indication: MULTIPLE SCLEROSIS
     Route: 041
     Dates: start: 20150309, end: 20150309

REACTIONS (12)
  - Disability [Unknown]
  - Feeling abnormal [Unknown]
  - Lethargy [Not Recovered/Not Resolved]
  - Crying [Unknown]
  - Depressed mood [Recovered/Resolved]
  - Rash papular [Unknown]
  - Fall [Unknown]
  - Mental impairment [Recovering/Resolving]
  - Blood glucose increased [Unknown]
  - Gait disturbance [Unknown]
  - Pruritus [Unknown]
  - Movement disorder [Recovered/Resolved]

NARRATIVE: CASE EVENT DATE: 2015
